FAERS Safety Report 18236513 (Version 1)
Quarter: 2020Q3

REPORT INFORMATION
  Report Type: Other
  Country: IN (occurrence: IN)
  Receive Date: 20200907
  Receipt Date: 20200907
  Transmission Date: 20201103
  Serious: Yes (Death, Hospitalization, Other)
  Sender: FDA-Public Use
  Company Number: IN-SQUARE-000002

PATIENT
  Age: 26 Year
  Sex: Male

DRUGS (1)
  1. ACYCLOVIR. [Suspect]
     Active Substance: ACYCLOVIR
     Indication: ORAL HERPES
     Dosage: 7?DAY COURSE, 400 MG (THREE TIMES PER DAY)
     Route: 048

REACTIONS (4)
  - Acute kidney injury [Fatal]
  - Acute respiratory distress syndrome [Fatal]
  - Thrombocytopenia [Unknown]
  - SJS-TEN overlap [Fatal]
